FAERS Safety Report 8610008-8 (Version None)
Quarter: 2012Q3

REPORT INFORMATION
  Report Type: 
  Country: None (occurrence: None)
  Receive Date: 20120822
  Receipt Date: 20120813
  Transmission Date: 20120928
  Serious: Yes (Hospitalization)
  Sender: FDA-Public Use
  Company Number: FR-AMGEN-FRASP2012052161

PATIENT
  Age: 57 Year
  Sex: Female

DRUGS (4)
  1. MOPRAL                             /00661201/ [Concomitant]
  2. ENBREL [Suspect]
     Indication: PSORIATIC ARTHROPATHY
     Dosage: 50 MG, WEEKLY
     Route: 058
     Dates: start: 20120531
  3. RIFAMPIN AND ISONIAZID [Concomitant]
     Dosage: UNK
     Route: 048
     Dates: start: 20120417
  4. DICLOFENAC SODIUM [Concomitant]

REACTIONS (6)
  - TINNITUS [None]
  - HYPERTENSION [None]
  - DYSAESTHESIA [None]
  - MALAISE [None]
  - VERTIGO [None]
  - ISCHAEMIC STROKE [None]
